FAERS Safety Report 7380263-3 (Version None)
Quarter: 2011Q1

REPORT INFORMATION
  Report Type: 
  Country: None (occurrence: None)
  Receive Date: 20110329
  Receipt Date: 20110317
  Transmission Date: 20110831
  Serious: Yes (Hospitalization, Other)
  Sender: FDA-Public Use
  Company Number: US-US-EMD SERONO, INC.-7048689

PATIENT
  Sex: Female

DRUGS (2)
  1. REBIF [Suspect]
     Indication: PRODUCT USED FOR UNKNOWN INDICATION
     Route: 058
     Dates: start: 20080820, end: 20101231
  2. REBIF [Suspect]
     Route: 058
     Dates: start: 20110114

REACTIONS (5)
  - PAIN [None]
  - PNEUMONIA [None]
  - MALAISE [None]
  - SUICIDAL BEHAVIOUR [None]
  - SELF-MEDICATION [None]
